FAERS Safety Report 4840742-7 (Version None)
Quarter: 2005Q4

REPORT INFORMATION
  Report Type: 
  Country: None (occurrence: None)
  Receive Date: 20051027
  Receipt Date: 20050314
  Transmission Date: 20060501
  Serious: Yes (Other)
  Sender: FDA-Public Use
  Company Number: HQWYE166117MAR05

PATIENT
  Age: 58 Year
  Sex: Female
  Weight: 56.3 kg

DRUGS (3)
  1. PREMARIN [Suspect]
     Indication: MENOPAUSAL SYMPTOMS
     Dosage: ORAL
     Route: 048
     Dates: start: 19750101, end: 20000101
  2. ESTRADERM [Suspect]
     Indication: MENOPAUSAL SYMPTOMS
     Dosage: TOPICAL
     Route: 061
     Dates: start: 19750101, end: 20000101
  3. ESTROVIS [Suspect]
     Indication: MENOPAUSAL SYMPTOMS
     Dosage: ORAL
     Route: 048
     Dates: start: 19750101, end: 20000101

REACTIONS (1)
  - BREAST CANCER [None]
